FAERS Safety Report 7887907-8 (Version None)
Quarter: 2011Q4

REPORT INFORMATION
  Report Type: 
  Country: None (occurrence: None)
  Receive Date: 20111103
  Receipt Date: 20111025
  Transmission Date: 20120403
  Serious: Yes (Life-Threatening, Hospitalization)
  Sender: FDA-Public Use
  Company Number: US-PERRIGO-11US009147

PATIENT
  Age: 30 Year
  Sex: Male
  Weight: 90 kg

DRUGS (5)
  1. ETHANOL [Concomitant]
     Indication: PRODUCT USED FOR UNKNOWN INDICATION
     Dosage: UNK
     Route: 048
  2. TENOFOVIR DISOPROXIL FUMARATE [Concomitant]
     Indication: HIV INFECTION
     Dosage: UNK
     Route: 065
  3. IBUPROFEN [Suspect]
     Indication: PRODUCT USED FOR UNKNOWN INDICATION
     Dosage: 96 G, SINGLE
     Route: 048
  4. EFAVIRENZ [Concomitant]
     Indication: HIV INFECTION
     Dosage: UNK
     Route: 065
  5. EMTRICITABINE [Concomitant]
     Indication: HIV INFECTION
     Dosage: UNK
     Route: 065

REACTIONS (8)
  - SHOCK [None]
  - METABOLIC ACIDOSIS [None]
  - POLYURIA [None]
  - RENAL FAILURE [None]
  - HEART RATE INCREASED [None]
  - COMA [None]
  - OVERDOSE [None]
  - CIRCULATORY COLLAPSE [None]
